FAERS Safety Report 13597132 (Version 1)
Quarter: 2017Q2

REPORT INFORMATION
  Report Type: Spontaneous
  Country: FR (occurrence: FR)
  Receive Date: 20170531
  Receipt Date: 20170531
  Transmission Date: 20170830
  Serious: Yes (Other)
  Sender: FDA-Public Use
  Company Number: FR-NAPPMUNDI-GBR-2017-0045621

PATIENT
  Age: 34 Year
  Sex: Female

DRUGS (4)
  1. OXYCONTIN [Suspect]
     Active Substance: OXYCODONE HYDROCHLORIDE
     Indication: SCIATICA
     Dosage: 20 MG, BID (20MG STRENGTH)
     Route: 048
     Dates: start: 20161201, end: 20161217
  2. OXYNORMORO [Suspect]
     Active Substance: OXYCODONE
     Indication: SCIATICA
     Dosage: 2 MG, QID
     Route: 048
     Dates: start: 20161201, end: 20161217
  3. DEROXAT [Concomitant]
     Active Substance: PAROXETINE HYDROCHLORIDE
  4. GABAPENTINE [Concomitant]
     Active Substance: GABAPENTIN

REACTIONS (1)
  - Hepatitis [Unknown]

NARRATIVE: CASE EVENT DATE: 20161217
